FAERS Safety Report 10166646 (Version 1)
Quarter: 2014Q2

REPORT INFORMATION
  Report Type: Spontaneous
  Country: US (occurrence: None)
  Receive Date: 20140509
  Receipt Date: 20140509
  Transmission Date: 20141212
  Serious: Yes (Life-Threatening, Hospitalization)
  Sender: FDA-Public Use
  Company Number: None

PATIENT
  Age: 70 Year
  Sex: Male
  Weight: 72.7 kg

DRUGS (1)
  1. METHYLPREDNISOLONE [Suspect]
     Indication: MULTIPLE SCLEROSIS
     Route: 042
     Dates: start: 20140203, end: 20140203

REACTIONS (8)
  - Pruritus [None]
  - Unresponsive to stimuli [None]
  - Pulse absent [None]
  - Blood pressure [None]
  - Oxygen saturation decreased [None]
  - Respiratory depression [None]
  - Syncope [None]
  - Bradycardia [None]
